FAERS Safety Report 14339270 (Version 2)
Quarter: 2018Q1

REPORT INFORMATION
  Report Type: Spontaneous
  Country: LT (occurrence: LT)
  Receive Date: 20171230
  Receipt Date: 20180201
  Transmission Date: 20180509
  Serious: Yes (Life-Threatening, Other)
  Sender: FDA-Public Use
  Company Number: LT-ACCORD-062397

PATIENT
  Age: 53 Year
  Sex: Female

DRUGS (13)
  1. ONDANSETRON [Interacting]
     Active Substance: ONDANSETRON
     Indication: PROPHYLAXIS
     Route: 048
     Dates: start: 20161121, end: 20161121
  2. CISPLATIN TEVA [Interacting]
     Active Substance: CISPLATIN
     Indication: PLEURAL MESOTHELIOMA
     Dosage: 0.5MG/ML 100ML - II CYCLE
     Route: 042
     Dates: start: 201611
  3. FOLATE SODIUM/FOLIC ACID [Concomitant]
     Indication: PREMEDICATION
     Route: 042
     Dates: start: 2016
  4. PEMETREXED. [Interacting]
     Active Substance: PEMETREXED
     Indication: PLEURAL MESOTHELIOMA
     Dosage: II CYCLE
     Dates: start: 201611
  5. FENTANYL. [Interacting]
     Active Substance: FENTANYL
     Indication: PAIN PROPHYLAXIS
     Route: 062
     Dates: start: 2016
  6. TRAMADOL/TRAMADOL HYDROCHLORIDE [Suspect]
     Active Substance: TRAMADOL HYDROCHLORIDE
     Indication: PAIN PROPHYLAXIS
     Route: 048
     Dates: start: 2016
  7. ALPRAZOLAM. [Interacting]
     Active Substance: ALPRAZOLAM
     Indication: ANXIETY DISORDER
     Route: 048
     Dates: start: 2016
  8. APREPITANT. [Interacting]
     Active Substance: APREPITANT
     Indication: PROPHYLAXIS
     Route: 048
     Dates: start: 20161121, end: 20161121
  9. TIANEPTINE/TIANEPTINE SODIUM [Concomitant]
     Active Substance: TIANEPTINE SODIUM
     Indication: DEPRESSION
     Route: 048
     Dates: start: 2016
  10. DEXAMETHASONE. [Concomitant]
     Active Substance: DEXAMETHASONE
     Indication: DRUG TOLERANCE
     Route: 048
     Dates: start: 20161120, end: 20161121
  11. BETALOC ZOK [Concomitant]
     Active Substance: METOPROLOL SUCCINATE
     Indication: HYPERTENSION
     Route: 048
     Dates: start: 2016
  12. MANNITOL FRESENIUS [Concomitant]
     Indication: TOXICITY TO VARIOUS AGENTS
     Dosage: 10% ?10 PROCEDURE
     Route: 042
     Dates: start: 20161121, end: 20161121
  13. CYANOCOBALAMIN/CYANOCOBALAMIN ZINC TANNATE/CYANOCOBALAMIN-TANNIN COMPLEX [Concomitant]
     Indication: PREMEDICATION
     Dates: start: 2016

REACTIONS (8)
  - Sudden cardiac death [Recovered/Resolved]
  - Anaphylactic reaction [Recovered/Resolved]
  - Haemodynamic instability [Recovered/Resolved]
  - Hypersensitivity [Recovered/Resolved]
  - Hypomagnesaemia [Unknown]
  - Drug interaction [Unknown]
  - Cardiotoxicity [Recovered/Resolved]
  - Toxicity to various agents [Unknown]

NARRATIVE: CASE EVENT DATE: 2016
